FAERS Safety Report 6034869-4 (Version None)
Quarter: 2009Q1

REPORT INFORMATION
  Report Type: 
  Country: None (occurrence: None)
  Receive Date: 20090112
  Receipt Date: 20090106
  Transmission Date: 20090719
  Serious: Yes (Death, Hospitalization, Other)
  Sender: FDA-Public Use
  Company Number: FR-ELI_LILLY_AND_COMPANY-FR200812001290

PATIENT
  Age: 75 Year
  Sex: Female

DRUGS (6)
  1. FORTEO [Suspect]
     Indication: OSTEOPOROSIS POSTMENOPAUSAL
     Dosage: 20 UG, DAILY (1/D)
     Route: 058
     Dates: start: 20071130, end: 20081001
  2. DELURSAN [Concomitant]
     Indication: BILIARY CIRRHOSIS PRIMARY
     Dosage: 250, 4/D
     Route: 048
  3. SEROPLEX [Concomitant]
     Indication: DEPRESSION
     Dosage: UNK, UNKNOWN
     Route: 048
  4. FLECAINE [Concomitant]
     Indication: HYPERTENSION
     Dosage: 1/2 D/F, 2/D
     Route: 048
  5. ALDALIX [Concomitant]
     Indication: HYPERTENSION
     Dosage: 1 D/F, DAILY (1/D)
     Route: 048
  6. NOOTROPYL [Concomitant]
     Indication: HYPERTENSION
     Dosage: UNK, UNKNOWN
     Route: 048

REACTIONS (4)
  - BLADDER CANCER [None]
  - BREAST CANCER [None]
  - DEATH [None]
  - URINARY BLADDER POLYP [None]
